FAERS Safety Report 11355229 (Version 1)
Quarter: 2015Q3

REPORT INFORMATION
  Report Type: Report from Study
  Country: US (occurrence: US)
  Receive Date: 20150807
  Receipt Date: 20150807
  Transmission Date: 20151125
  Serious: Yes (Hospitalization, Other)
  Sender: FDA-Public Use
  Company Number: PHEH2015US014823

PATIENT
  Age: 33 Year
  Sex: Female
  Weight: 50.7 kg

DRUGS (2)
  1. GILENYA [Suspect]
     Active Substance: FINGOLIMOD HYDROCHLORIDE
     Indication: MULTIPLE SCLEROSIS
     Dosage: 0.5 MG, QD
     Route: 048
     Dates: start: 20130718, end: 201501
  2. GILENYA [Suspect]
     Active Substance: FINGOLIMOD HYDROCHLORIDE
     Dosage: 0.5 MG, QD
     Route: 048
     Dates: start: 20150617

REACTIONS (15)
  - Dyspnoea [Unknown]
  - Panic attack [Unknown]
  - Hemiplegia [Recovering/Resolving]
  - Hypersensitivity [Recovered/Resolved]
  - Memory impairment [Unknown]
  - Oral herpes [Unknown]
  - Multiple sclerosis relapse [Unknown]
  - Peroneal nerve palsy [Recovering/Resolving]
  - Central nervous system lesion [Unknown]
  - Hemiparesis [Recovering/Resolving]
  - Weight increased [Recovered/Resolved]
  - Muscular weakness [Unknown]
  - Gait disturbance [Unknown]
  - Tremor [Unknown]
  - Urticaria [Recovered/Resolved]

NARRATIVE: CASE EVENT DATE: 201501
